FAERS Safety Report 6243613-7 (Version None)
Quarter: 2009Q2

REPORT INFORMATION
  Report Type: 
  Country: None (occurrence: None)
  Receive Date: 20090624
  Receipt Date: 20090618
  Transmission Date: 20091009
  Serious: Yes (Other)
  Sender: FDA-Public Use
  Company Number: BR-PFIZER INC-2009229171

PATIENT

DRUGS (1)
  1. DETRUSITOL LA [Suspect]
     Dosage: UNK

REACTIONS (1)
  - BRAIN NEOPLASM MALIGNANT [None]
